FAERS Safety Report 4890583-X (Version None)
Quarter: 2006Q1

REPORT INFORMATION
  Report Type: 
  Country: None (occurrence: None)
  Receive Date: 20060123
  Receipt Date: 20060113
  Transmission Date: 20060701
  Serious: Yes (Death)
  Sender: FDA-Public Use
  Company Number: 163-20785-05120226

PATIENT
  Age: 41 Year
  Sex: Male

DRUGS (10)
  1. THALOMID [Suspect]
     Indication: MULTIPLE MYELOMA
     Dosage: 200 MG, ORAL
     Route: 048
     Dates: start: 20051027, end: 20051110
  2. VELCADE [Concomitant]
  3. LORTAB [Concomitant]
  4. REGLAN [Concomitant]
  5. LOPRESSOR [Concomitant]
  6. REMERON [Concomitant]
  7. PROTONIX [Concomitant]
  8. SENOKOT [Concomitant]
  9. RENAGEL [Concomitant]
  10. MIRALAX [Concomitant]

REACTIONS (1)
  - OVERDOSE [None]
